FAERS Safety Report 23755715 (Version 1)
Quarter: 2024Q2

REPORT INFORMATION
  Report Type: Spontaneous
  Country: IT (occurrence: IT)
  Receive Date: 20240418
  Receipt Date: 20240418
  Transmission Date: 20240715
  Serious: Yes (Other)
  Sender: FDA-Public Use
  Company Number: IT-Reliance-000393

PATIENT
  Age: 72 Year
  Sex: Female

DRUGS (1)
  1. CAPECITABINE [Suspect]
     Active Substance: CAPECITABINE
     Indication: HER2 negative breast cancer
     Dates: start: 202110, end: 2022

REACTIONS (1)
  - IVth nerve paralysis [Recovering/Resolving]

NARRATIVE: CASE EVENT DATE: 20211101
